FAERS Safety Report 14622231 (Version 1)
Quarter: 2018Q1

REPORT INFORMATION
  Report Type: Spontaneous
  Country: FR (occurrence: FR)
  Receive Date: 20180311
  Receipt Date: 20180311
  Transmission Date: 20180509
  Serious: Yes (Other)
  Sender: FDA-Public Use
  Company Number: FR-MALLINCKRODT-T201801010

PATIENT
  Age: 38 Year
  Sex: Female
  Weight: 60 kg

DRUGS (6)
  1. KETAMINE [Suspect]
     Active Substance: KETAMINE
     Indication: ANAESTHESIA
     Dosage: 20 MG
     Route: 042
  2. OFIRMEV [Suspect]
     Active Substance: ACETAMINOPHEN
     Indication: PAIN MANAGEMENT
     Dosage: 1 G
     Route: 042
  3. RAPIFEN (IBUPROFEN) [Suspect]
     Active Substance: IBUPROFEN
     Indication: ANAESTHESIA
     Dosage: 1 MG
     Route: 042
  4. DEXAMETHASONE. [Suspect]
     Active Substance: DEXAMETHASONE
     Indication: PRODUCT USED FOR UNKNOWN INDICATION
     Dosage: 8 MG
     Route: 042
  5. PROFENID [Suspect]
     Active Substance: KETOPROFEN
     Indication: PAIN MANAGEMENT
     Dosage: 100 MG
     Route: 042
  6. PROPOFOL. [Suspect]
     Active Substance: PROPOFOL
     Indication: ANAESTHESIA
     Dosage: 200 MG
     Route: 042

REACTIONS (3)
  - Tachycardia [Recovered/Resolved]
  - Erythema [Recovered/Resolved]
  - Hypotension [Recovered/Resolved]

NARRATIVE: CASE EVENT DATE: 20180117
